FAERS Safety Report 11437124 (Version 1)
Quarter: 2015Q3

REPORT INFORMATION
  Report Type: Spontaneous
  Country: US (occurrence: US)
  Receive Date: 20150821
  Receipt Date: 20150821
  Transmission Date: 20151125
  Serious: Yes (Hospitalization)
  Sender: FDA-Public Use
  Company Number: US-ELI_LILLY_AND_COMPANY-US200703001261

PATIENT
  Sex: Female

DRUGS (3)
  1. CYMBALTA [Suspect]
     Active Substance: DULOXETINE HYDROCHLORIDE
     Dosage: 30 MG, UNK
     Dates: end: 20070224
  2. FOSAMAX [Concomitant]
     Active Substance: ALENDRONATE SODIUM
  3. XANAX [Concomitant]
     Active Substance: ALPRAZOLAM

REACTIONS (9)
  - Influenza like illness [Unknown]
  - Nausea [Unknown]
  - Fatigue [Unknown]
  - Nausea [Unknown]
  - Tinnitus [Unknown]
  - Asthenia [Unknown]
  - Constipation [Unknown]
  - Abdominal discomfort [Unknown]
  - Anxiety [Unknown]

NARRATIVE: CASE EVENT DATE: 2007
